FAERS Safety Report 17008449 (Version 1)
Quarter: 2019Q4

REPORT INFORMATION
  Report Type: Spontaneous
  Country: US (occurrence: US)
  Receive Date: 20190929
  Receipt Date: 20190929
  Transmission Date: 20200122
  Serious: No
  Sender: FDA-Public Use
  Company Number: None

PATIENT
  Age: 79 Year
  Sex: Male

DRUGS (1)
  1. FORTEO [Suspect]
     Active Substance: TERIPARATIDE
     Route: 048
     Dates: start: 20161220

REACTIONS (2)
  - Memory impairment [None]
  - Extra dose administered [None]

NARRATIVE: CASE EVENT DATE: 20190929
